FAERS Safety Report 8603268-0 (Version None)
Quarter: 2012Q3

REPORT INFORMATION
  Report Type: 
  Country: None (occurrence: None)
  Receive Date: 20120817
  Receipt Date: 20120815
  Transmission Date: 20120928
  Serious: Yes (Death)
  Sender: FDA-Public Use
  Company Number: JP-B.I. PHARMACEUTICALS,INC./RIDGEFIELD-2012-BP-19238NB

PATIENT

DRUGS (1)
  1. PRADAXA [Suspect]
     Dosage: 110 MG
     Route: 048

REACTIONS (3)
  - CARDIO-RESPIRATORY ARREST [None]
  - MELAENA [None]
  - HAEMORRHAGE [None]
